FAERS Safety Report 5593272-1 (Version None)
Quarter: 2008Q1

REPORT INFORMATION
  Report Type: 
  Country: None (occurrence: None)
  Receive Date: 20080114
  Receipt Date: 20071231
  Transmission Date: 20080703
  Serious: Yes (Hospitalization)
  Sender: FDA-Public Use
  Company Number: 430014J07USA

PATIENT
  Age: 43 Year
  Sex: Male
  Weight: 72.5755 kg

DRUGS (8)
  1. NOVANTRONE [Suspect]
     Indication: MULTIPLE SCLEROSIS
     Dosage: 12 MG/M2, 1 IN 3 MONTHS, INTRAVENOUS
     Route: 042
     Dates: start: 20070829
  2. AMANTADINE HCL [Concomitant]
  3. BACLOFEN [Concomitant]
  4. ARICEPT [Concomitant]
  5. FLOMAX (MORNIFLUMATE) [Concomitant]
  6. EFFEXOR VR (VENLAFAXINE HYDROCHLORIDE) [Concomitant]
  7. REBIF [Concomitant]
  8. PAXIL [Concomitant]

REACTIONS (3)
  - AFFECTIVE DISORDER [None]
  - ENTEROCOCCAL SEPSIS [None]
  - IMMUNOSUPPRESSION [None]
